FAERS Safety Report 6501449-3 (Version None)
Quarter: 2009Q4

REPORT INFORMATION
  Report Type: 
  Country: None (occurrence: None)
  Receive Date: 20091216
  Receipt Date: 20091210
  Transmission Date: 20100525
  Serious: Yes (Hospitalization)
  Sender: FDA-Public Use
  Company Number: US-BRISTOL-MYERS SQUIBB COMPANY-14629109

PATIENT
  Age: 72 Year
  Sex: Male
  Weight: 86 kg

DRUGS (15)
  1. TAXOL [Suspect]
     Indication: NON-SMALL CELL LUNG CANCER
     Dosage: 400MG EVERY3WEEK;10APR09-10APR09
     Route: 042
     Dates: start: 20090320
  2. CARBOPLATIN [Suspect]
     Indication: NON-SMALL CELL LUNG CANCER
     Dosage: 1200MG EVERY 3WEEK;10APR09-10APR09
     Route: 042
     Dates: start: 20090320
  3. CP-751,871 [Suspect]
     Indication: NON-SMALL CELL LUNG CANCER
     Dosage: 1556MG EVERY3WEEK;10APR09-10APR09
     Route: 042
     Dates: start: 20090320, end: 20090320
  4. SYMBICORT [Concomitant]
     Dosage: 1DOSAGE FORM=160/4.5PUFFS
     Route: 055
     Dates: start: 20090323
  5. SPIRIVA [Concomitant]
     Dosage: 1DF: 1PUFF(18MCG)ONE CAPSULE
     Route: 055
     Dates: start: 20090323
  6. PRILOSEC [Concomitant]
     Dates: start: 20090323
  7. ASPIRIN [Concomitant]
     Dates: start: 20090323
  8. ALBUTEROL [Concomitant]
     Dosage: FOUR TIMES DAILY
     Dates: start: 20090323
  9. OXYGEN [Concomitant]
     Dates: start: 20090323
  10. ZOFRAN [Concomitant]
  11. DECADRON [Concomitant]
  12. BENADRYL [Concomitant]
  13. PEPCID [Concomitant]
  14. STEROIDS [Concomitant]
  15. ATIVAN [Concomitant]

REACTIONS (3)
  - INAPPROPRIATE ANTIDIURETIC HORMONE SECRETION [None]
  - ORTHOSTATIC HYPOTENSION [None]
  - PNEUMONIA [None]
